FAERS Safety Report 18146332 (Version 2)
Quarter: 2021Q1

REPORT INFORMATION
  Report Type: Report from Study
  Country: US (occurrence: US)
  Receive Date: 20200813
  Receipt Date: 20210121
  Transmission Date: 20210419
  Serious: Yes (Hospitalization, Other)
  Sender: FDA-Public Use
  Company Number: US-AMGEN-USASP2020126576

PATIENT
  Age: 60 Year
  Sex: Female

DRUGS (2)
  1. PROLIA [Suspect]
     Active Substance: DENOSUMAB
     Indication: PRODUCT USED FOR UNKNOWN INDICATION
     Dosage: UNK
     Route: 065
  2. CYCLOBENZAPRINE. [Suspect]
     Active Substance: CYCLOBENZAPRINE
     Indication: PRODUCT USED FOR UNKNOWN INDICATION
     Route: 065

REACTIONS (11)
  - Fluid retention [Unknown]
  - Ageusia [Unknown]
  - Anosmia [Unknown]
  - Cyst [Unknown]
  - Speech disorder [Unknown]
  - Anaphylactic reaction [Unknown]
  - Blood calcium decreased [Unknown]
  - Ear discomfort [Unknown]
  - Brain neoplasm [Unknown]
  - Weight decreased [Not Recovered/Not Resolved]
  - Pain [Unknown]

NARRATIVE: CASE EVENT DATE: 20200804
